FAERS Safety Report 4628792-7 (Version None)
Quarter: 2005Q2

REPORT INFORMATION
  Report Type: 
  Country: None (occurrence: None)
  Receive Date: 20050406
  Receipt Date: 20050329
  Transmission Date: 20051028
  Serious: Yes (Hospitalization, Other)
  Sender: FDA-Public Use
  Company Number: USA-2005-0019548

PATIENT
  Age: 43 Year
  Sex: Female
  Weight: 65 kg

DRUGS (6)
  1. OXYCONTIN [Suspect]
     Dosage: 20 MG, BID
     Dates: start: 20040101, end: 20050215
  2. OXYCODONE HCL [Concomitant]
  3. PH-739358 [Concomitant]
  4. BISACODYL [Concomitant]
  5. ZOPICLONE (ZOPICLONE) [Concomitant]
  6. PRUNACOLON (PROCAINE HYDROCHLORIDE, DEXPANTHENOL, SODIUM CHLORIDE, SEN [Concomitant]

REACTIONS (11)
  - ABDOMINAL PAIN [None]
  - ASCITES [None]
  - CONSTIPATION [None]
  - DISEASE PROGRESSION [None]
  - FLANK PAIN [None]
  - ILEUS PARALYTIC [None]
  - INSOMNIA [None]
  - LUNG DISORDER [None]
  - NAUSEA [None]
  - PAIN [None]
  - VOMITING [None]
